FAERS Safety Report 6601586-9 (Version None)
Quarter: 2010Q1

REPORT INFORMATION
  Report Type: 
  Country: None (occurrence: None)
  Receive Date: 20100225
  Receipt Date: 20100112
  Transmission Date: 20100710
  Serious: No
  Sender: FDA-Public Use
  Company Number: US-KINGPHARMUSA00001-K201000056

PATIENT

DRUGS (1)
  1. FLECTOR [Suspect]
     Dosage: UNK PATCH, UNK

REACTIONS (1)
  - GASTROINTESTINAL DISORDER [None]
